FAERS Safety Report 6556801-7 (Version None)
Quarter: 2010Q1

REPORT INFORMATION
  Report Type: 
  Country: None (occurrence: None)
  Receive Date: 20100128
  Receipt Date: 20100115
  Transmission Date: 20100710
  Serious: Yes (Life-Threatening, Other)
  Sender: FDA-Public Use
  Company Number: PHHY2010US00843

PATIENT
  Sex: Female

DRUGS (7)
  1. RECLAST [Suspect]
     Indication: OSTEOPENIA
     Dosage: 5 MG, ONE TIME
     Route: 042
     Dates: start: 20091231, end: 20091231
  2. METOPROLOL [Concomitant]
     Indication: SUPRAVENTRICULAR TACHYCARDIA
     Dosage: 25 MG, QD
     Route: 048
  3. ARIMIDEX [Concomitant]
     Indication: BREAST CANCER
     Dosage: 1 MG, DAILY
     Route: 048
  4. SIMVASTATIN [Concomitant]
     Dosage: 40 MG
     Route: 048
  5. COZAAR [Concomitant]
     Route: 048
  6. DIAZIDE [Concomitant]
     Indication: HYPERTENSION
     Route: 048
  7. METFORMIN [Concomitant]
     Indication: TYPE 2 DIABETES MELLITUS
     Dosage: 1000 MG, BID
     Route: 048

REACTIONS (17)
  - ARRHYTHMIA [None]
  - ARTHRALGIA [None]
  - ATRIAL TACHYCARDIA [None]
  - CHILLS [None]
  - EYE PAIN [None]
  - EYELID OEDEMA [None]
  - EYELID PTOSIS [None]
  - HEART RATE INCREASED [None]
  - HERPES ZOSTER [None]
  - IRITIS [None]
  - MYALGIA [None]
  - OCULAR HYPERAEMIA [None]
  - PAIN [None]
  - PARAESTHESIA [None]
  - PYREXIA [None]
  - RASH [None]
  - VISION BLURRED [None]
